FAERS Safety Report 15363936 (Version 1)
Quarter: 2018Q3

REPORT INFORMATION
  Report Type: Spontaneous
  Country: US (occurrence: US)
  Receive Date: 20180905
  Receipt Date: 20180905
  Transmission Date: 20181010
  Serious: Yes (Other)
  Sender: FDA-Public Use
  Company Number: None

PATIENT
  Age: 23 Year
  Sex: Female
  Weight: 63 kg

DRUGS (2)
  1. MISOPROSTOL. [Suspect]
     Active Substance: MISOPROSTOL
     Indication: ABORTION
     Route: 048
     Dates: start: 20120331, end: 20120331
  2. MIFEPREX [Suspect]
     Active Substance: MIFEPRISTONE
     Indication: ABORTION
     Dosage: ?          QUANTITY:1 TABLET(S);OTHER FREQUENCY:1 TIME;?
     Route: 048
     Dates: start: 20120331, end: 20120331

REACTIONS (1)
  - Infertility [None]

NARRATIVE: CASE EVENT DATE: 20150901
